FAERS Safety Report 18998937 (Version 2)
Quarter: 2021Q1

REPORT INFORMATION
  Report Type: Report from Study
  Country: US (occurrence: US)
  Receive Date: 20210311
  Receipt Date: 20210319
  Transmission Date: 20210420
  Serious: Yes (Hospitalization)
  Sender: FDA-Public Use
  Company Number: US-TAKEDA-2021TUS015446

PATIENT
  Age: 8 Year
  Sex: Male

DRUGS (4)
  1. TEDUGLUTIDE [Suspect]
     Active Substance: TEDUGLUTIDE
     Indication: SHORT-BOWEL SYNDROME
     Dosage: 1.31 MILLIGRAM, QD
     Route: 058
     Dates: start: 202102
  2. TEDUGLUTIDE [Suspect]
     Active Substance: TEDUGLUTIDE
     Indication: SHORT-BOWEL SYNDROME
     Dosage: 1.31 MILLIGRAM, QD
     Route: 058
     Dates: start: 202102
  3. TEDUGLUTIDE [Suspect]
     Active Substance: TEDUGLUTIDE
     Indication: SHORT-BOWEL SYNDROME
     Dosage: 1.31 MILLIGRAM, QD
     Route: 058
     Dates: start: 202102
  4. TEDUGLUTIDE [Suspect]
     Active Substance: TEDUGLUTIDE
     Indication: SHORT-BOWEL SYNDROME
     Dosage: 1.31 MILLIGRAM, QD
     Route: 058
     Dates: start: 202102

REACTIONS (2)
  - Carbohydrate intolerance [Unknown]
  - Acidosis [Unknown]

NARRATIVE: CASE EVENT DATE: 20210216
